FAERS Safety Report 11685697 (Version 2)
Quarter: 2015Q4

REPORT INFORMATION
  Report Type: Report from Study
  Country: US (occurrence: US)
  Receive Date: 20151030
  Receipt Date: 20151118
  Transmission Date: 20160304
  Serious: Yes (Other)
  Sender: FDA-Public Use
  Company Number: US-AMGEN-USASL2015113725

PATIENT
  Age: 15 Year
  Sex: Female
  Weight: 29.48 kg

DRUGS (3)
  1. ENBREL [Suspect]
     Active Substance: ETANERCEPT
     Indication: JUVENILE IDIOPATHIC ARTHRITIS
     Dosage: 25 MG, QWK
     Route: 065
     Dates: start: 20150505, end: 20151008
  2. ENBREL [Suspect]
     Active Substance: ETANERCEPT
     Dosage: 25 MG EVERY 6 DAYS
     Route: 065
     Dates: start: 20151014
  3. ENBREL [Suspect]
     Active Substance: ETANERCEPT
     Dosage: 30 MG, QWK
     Route: 065
     Dates: start: 2015

REACTIONS (3)
  - Juvenile idiopathic arthritis [Recovering/Resolving]
  - Fatigue [Recovering/Resolving]
  - Arthralgia [Unknown]

NARRATIVE: CASE EVENT DATE: 2015
